FAERS Safety Report 19836131 (Version 1)
Quarter: 2021Q3

REPORT INFORMATION
  Report Type: Spontaneous
  Country: US (occurrence: US)
  Receive Date: 20210915
  Receipt Date: 20210915
  Transmission Date: 20211014
  Serious: No
  Sender: FDA-Public Use
  Company Number: US-BIOHAVEN PHARMACEUTICALS-2021BHV01018

PATIENT
  Age: 61 Year
  Sex: Female
  Weight: 49.89 kg

DRUGS (2)
  1. NURTEC ODT [Suspect]
     Active Substance: RIMEGEPANT SULFATE
     Indication: MIGRAINE
     Dosage: 75 MG, AS NEEDED
     Route: 048
     Dates: start: 2021
  2. UNSPECIFIED MEDICATIONS [Concomitant]
     Active Substance: UNSPECIFIED INGREDIENT

REACTIONS (3)
  - Drug ineffective [Not Recovered/Not Resolved]
  - Hangover [Unknown]
  - Malaise [Unknown]

NARRATIVE: CASE EVENT DATE: 2021
